FAERS Safety Report 10029061 (Version 2)
Quarter: 2014Q1

REPORT INFORMATION
  Report Type: Spontaneous
  Country: JP (occurrence: JP)
  Receive Date: 20140321
  Receipt Date: 20140321
  Transmission Date: 20141002
  Serious: Yes (Other)
  Sender: FDA-Public Use
  Company Number: JP-009507513-1403JPN003925

PATIENT
  Age: 84 Year
  Sex: Female
  Weight: 43 kg

DRUGS (6)
  1. JANUVIA TABLETS 50MG [Suspect]
     Indication: TYPE 2 DIABETES MELLITUS
     Dosage: 50 MG, QAM
     Route: 048
     Dates: start: 20110528, end: 20131004
  2. SIGMART [Concomitant]
     Indication: ANGINA PECTORIS
     Dosage: 5 MG, TID, MORNING, NOON AND EVENING
     Route: 048
     Dates: start: 20090624
  3. DIOVAN [Concomitant]
     Indication: HYPERTENSION
     Dosage: 40 MG, QAM
     Route: 048
     Dates: start: 20120825
  4. MECOBALAMIN [Concomitant]
     Indication: LUMBAR SPINAL STENOSIS
     Dosage: 0.5 MG, BID, MORNING AND NOON
     Route: 048
     Dates: start: 20090817, end: 20131026
  5. OPALMON [Concomitant]
     Indication: LUMBAR SPINAL STENOSIS
     Dosage: 5 MG, BID, MORNING AND NOON
     Route: 048
     Dates: start: 20100402, end: 20131026
  6. DAIO-KANZO-TO [Concomitant]
     Indication: CONSTIPATION
     Dosage: 2.5 G, BID, MORNING AND EVENING
     Route: 048
     Dates: start: 20111001

REACTIONS (1)
  - Seronegative arthritis [Recovered/Resolved]
